FAERS Safety Report 7215915-9 (Version None)
Quarter: 2011Q1

REPORT INFORMATION
  Report Type: 
  Country: None (occurrence: None)
  Receive Date: 20110105
  Receipt Date: 20110105
  Transmission Date: 20110831
  Serious: Yes (Death)
  Sender: FDA-Public Use
  Company Number: None

PATIENT
  Age: 39 Year
  Sex: Female
  Weight: 154 kg

DRUGS (1)
  1. METFORMIN HCL [Suspect]
     Indication: DIABETES MELLITUS
     Dosage: 1000 MG BID PO
     Route: 048

REACTIONS (19)
  - BRADYCARDIA [None]
  - BLOOD CREATININE INCREASED [None]
  - BLOOD GLUCOSE DECREASED [None]
  - BONE PAIN [None]
  - METABOLIC ACIDOSIS [None]
  - APNOEA [None]
  - BLOOD ALKALINE PHOSPHATASE INCREASED [None]
  - CYANOSIS [None]
  - ALANINE AMINOTRANSFERASE INCREASED [None]
  - CARDIAC DISORDER [None]
  - FEELING COLD [None]
  - TACHYPNOEA [None]
  - UNRESPONSIVE TO STIMULI [None]
  - PULSELESS ELECTRICAL ACTIVITY [None]
  - LETHARGY [None]
  - DIARRHOEA [None]
  - CARDIO-RESPIRATORY ARREST [None]
  - ASPARTATE AMINOTRANSFERASE INCREASED [None]
  - BLOOD LACTIC ACID INCREASED [None]
